FAERS Safety Report 20529342 (Version 1)
Quarter: 2022Q1

REPORT INFORMATION
  Report Type: Spontaneous
  Country: AT (occurrence: AT)
  Receive Date: 20220228
  Receipt Date: 20220228
  Transmission Date: 20220424
  Serious: Yes (Other)
  Sender: FDA-Public Use
  Company Number: AT-JNJFOC-20220242661

PATIENT

DRUGS (1)
  1. RISPERDAL [Suspect]
     Active Substance: RISPERIDONE
     Indication: Schizophrenia
     Route: 065

REACTIONS (7)
  - Suicidal ideation [Unknown]
  - Apathy [Unknown]
  - Disturbance in attention [Unknown]
  - Akathisia [Unknown]
  - Extrapyramidal disorder [Unknown]
  - Emotional poverty [Unknown]
  - Anhedonia [Unknown]
